FAERS Safety Report 7355296-3 (Version None)
Quarter: 2011Q1

REPORT INFORMATION
  Report Type: 
  Country: None (occurrence: None)
  Receive Date: 20110316
  Receipt Date: 20110310
  Transmission Date: 20110831
  Serious: Yes (Life-Threatening, Hospitalization, Disabling)
  Sender: FDA-Public Use
  Company Number: DE-PFIZER INC-2011053042

PATIENT
  Age: 34 Year
  Sex: Female
  Weight: 74 kg

DRUGS (9)
  1. LEVOTHYROXINE [Concomitant]
     Indication: PRIMARY HYPOTHYROIDISM
  2. VALETTE [Concomitant]
     Indication: BLOOD FOLLICLE STIMULATING HORMONE DECREASED
  3. COLECALCIFEROL [Concomitant]
     Indication: OSTEOPOROSIS
     Dosage: 1000 IU, 1X/DAY
     Dates: start: 20061017
  4. ACETYLSALICYLIC ACID [Concomitant]
     Dosage: 325 MG, 1X/DAY
  5. SOMATROPIN [Suspect]
     Indication: HYPOPITUITARISM
     Dosage: 0.7 MG, 1X/DAY
     Dates: start: 19960702, end: 20100617
  6. LEVOTHYROXINE [Concomitant]
     Indication: BLOOD THYROID STIMULATING HORMONE DECREASED
     Dosage: 100 UG, 1X/DAY
     Dates: start: 20051201
  7. VALETTE [Concomitant]
     Indication: BLOOD LUTEINISING HORMONE DECREASED
     Dosage: 2 MG, 1X/DAY
  8. ETHINYLESTRADIOL [Concomitant]
     Indication: BLOOD FOLLICLE STIMULATING HORMONE DECREASED
  9. ETHINYLESTRADIOL [Concomitant]
     Indication: BLOOD LUTEINISING HORMONE DECREASED
     Dosage: 0.03 MG, 1X/DAY

REACTIONS (1)
  - SARCOMA [None]
